FAERS Safety Report 11972337 (Version 2)
Quarter: 2016Q1

REPORT INFORMATION
  Report Type: Spontaneous
  Country: US (occurrence: US)
  Receive Date: 20160128
  Receipt Date: 20160217
  Transmission Date: 20160526
  Serious: Yes (Other)
  Sender: FDA-Public Use
  Company Number: US-BAYER-2016-014292

PATIENT
  Age: 76 Year
  Sex: Female
  Weight: 55.78 kg

DRUGS (4)
  1. ATENOLOL. [Concomitant]
     Active Substance: ATENOLOL
  2. AFRIN ORIGINAL [Suspect]
     Active Substance: OXYMETAZOLINE HYDROCHLORIDE
     Indication: NASAL CONGESTION
     Dosage: 1 PUFF(S), TID
     Route: 055
  3. LOSARTAN. [Concomitant]
     Active Substance: LOSARTAN
  4. AFRIN ORIGINAL [Suspect]
     Active Substance: OXYMETAZOLINE HYDROCHLORIDE
     Indication: NASAL CONGESTION
     Dosage: 1 PUFF(S), TID
     Route: 055

REACTIONS (5)
  - Intentional product misuse [None]
  - Product container issue [None]
  - Drug dependence [None]
  - Product use issue [None]
  - Intentional product use issue [None]
